FAERS Safety Report 8592497 (Version 2)
Quarter: 2014Q1

REPORT INFORMATION
  Report Type: Spontaneous
  Country: US (occurrence: US)
  Receive Date: 20120601
  Receipt Date: 20140217
  Transmission Date: 20141002
  Serious: No
  Sender: FDA-Public Use
  Company Number: US-ASTRAZENECA-2011SE78684

PATIENT
  Age: 47 Year
  Sex: Male
  Weight: 96.2 kg

DRUGS (2)
  1. ATACAND HCT [Suspect]
     Indication: BLOOD PRESSURE INCREASED
     Route: 048
     Dates: end: 20140115
  2. TOPROL XL [Suspect]
     Route: 048

REACTIONS (2)
  - Malaise [Unknown]
  - Drug dose omission [Unknown]
